FAERS Safety Report 10848636 (Version 1)
Quarter: 2015Q1

REPORT INFORMATION
  Report Type: Spontaneous
  Country: US (occurrence: US)
  Receive Date: 20150220
  Receipt Date: 20150220
  Transmission Date: 20150721
  Serious: Yes (Other)
  Sender: FDA-Public Use
  Company Number: US-CELGENEUS-163-21880-14040511

PATIENT
  Sex: Female
  Weight: 75.82 kg

DRUGS (1)
  1. REVLIMID [Suspect]
     Active Substance: LENALIDOMIDE
     Indication: PLASMA CELL MYELOMA
     Dosage: 25 MILLIGRAM
     Route: 048
     Dates: start: 20131224

REACTIONS (5)
  - Bladder spasm [Unknown]
  - Cellulitis [Unknown]
  - Sinusitis [Unknown]
  - Ear infection [Unknown]
  - Pyrexia [Unknown]
